FAERS Safety Report 6235709-0 (Version None)
Quarter: 2009Q2

REPORT INFORMATION
  Report Type: 
  Country: None (occurrence: None)
  Receive Date: 20090616
  Receipt Date: 20090610
  Transmission Date: 20091009
  Serious: Yes (Other)
  Sender: FDA-Public Use
  Company Number: 2009SP012755

PATIENT
  Sex: Male

DRUGS (2)
  1. PEG-INTRON [Suspect]
     Indication: HEPATITIS C
     Dates: start: 20090403, end: 20090515
  2. RIBAPAK [Suspect]
     Indication: HEPATITIS C
     Dosage: PO
     Route: 048
     Dates: start: 20090403, end: 20090515

REACTIONS (7)
  - ABNORMAL FAECES [None]
  - ANAEMIA [None]
  - DYSPNOEA [None]
  - EYE HAEMORRHAGE [None]
  - HAEMORRHAGE [None]
  - THINKING ABNORMAL [None]
  - URINE ODOUR ABNORMAL [None]
